FAERS Safety Report 15353341 (Version 1)
Quarter: 2018Q3

REPORT INFORMATION
  Report Type: Spontaneous
  Country: US (occurrence: US)
  Receive Date: 20180905
  Receipt Date: 20180905
  Transmission Date: 20181010
  Serious: No
  Sender: FDA-Public Use
  Company Number: US-TEVA-2018-US-950581

PATIENT
  Age: 15 Year
  Sex: Female

DRUGS (2)
  1. SPRINTEC [Suspect]
     Active Substance: ETHINYL ESTRADIOL\NORGESTIMATE
     Indication: VAGINAL HAEMORRHAGE
     Dosage: DOSE STRENGTH:  .180;.215;.250+.035MG
     Dates: start: 20180701
  2. SPRINTEC [Suspect]
     Active Substance: ETHINYL ESTRADIOL\NORGESTIMATE
     Indication: ACNE
     Dates: start: 20180701

REACTIONS (5)
  - Pain [Unknown]
  - Mood swings [Unknown]
  - Muscle spasms [Unknown]
  - Anxiety [Unknown]
  - Menstruation irregular [Unknown]

NARRATIVE: CASE EVENT DATE: 20180701
